FAERS Safety Report 23634848 (Version 4)
Quarter: 2024Q2

REPORT INFORMATION
  Report Type: Spontaneous
  Country: US (occurrence: US)
  Receive Date: 20240315
  Receipt Date: 20240628
  Transmission Date: 20240716
  Serious: Yes (Hospitalization)
  Sender: FDA-Public Use
  Company Number: US-CHIESI-2024CHF01352

PATIENT
  Age: 35 Year
  Sex: Female
  Weight: 51 kg

DRUGS (4)
  1. FERRIPROX [Suspect]
     Active Substance: DEFERIPRONE
     Indication: Haemochromatosis
     Dosage: 2000 MILLIGRAM, BID
     Route: 048
     Dates: start: 20210721, end: 2024
  2. FERRIPROX [Suspect]
     Active Substance: DEFERIPRONE
     Indication: Red blood cell transfusion
  3. FERRIPROX [Suspect]
     Active Substance: DEFERIPRONE
     Indication: Sickle cell disease
  4. JADENU [Concomitant]
     Active Substance: DEFERASIROX
     Indication: Product used for unknown indication
     Dosage: UNK

REACTIONS (1)
  - Ill-defined disorder [Not Recovered/Not Resolved]

NARRATIVE: CASE EVENT DATE: 20240307
